FAERS Safety Report 17323795 (Version 2)
Quarter: 2020Q1

REPORT INFORMATION
  Report Type: Spontaneous
  Country: US (occurrence: US)
  Receive Date: 20200127
  Receipt Date: 20200130
  Transmission Date: 20200409
  Serious: No
  Sender: FDA-Public Use
  Company Number: US-009507513-1910USA017563

PATIENT
  Age: 52 Year
  Sex: Female
  Weight: 96.15 kg

DRUGS (1)
  1. KEYTRUDA [Suspect]
     Active Substance: PEMBROLIZUMAB
     Indication: NON-SMALL CELL LUNG CANCER
     Dosage: UNK UNK, Q3W
     Route: 042
     Dates: start: 20190628

REACTIONS (3)
  - Cystitis [Unknown]
  - Product dose omission [Unknown]
  - Rash [Unknown]

NARRATIVE: CASE EVENT DATE: 20191115
